FAERS Safety Report 11111082 (Version 1)
Quarter: 2015Q2

REPORT INFORMATION
  Report Type: Spontaneous
  Country: GB (occurrence: GB)
  Receive Date: 20150513
  Receipt Date: 20150513
  Transmission Date: 20150821
  Serious: Yes (Other)
  Sender: FDA-Public Use
  Company Number: GB-BAYER-2015-220247

PATIENT
  Age: 1 Week
  Sex: Female
  Weight: 2.03 kg

DRUGS (5)
  1. NYSTATIN. [Concomitant]
     Active Substance: NYSTATIN
     Indication: ORAL CANDIDIASIS
     Dosage: 100000 IU, TID
     Dates: start: 20150419, end: 20150428
  2. CLOTRIMAZOLE. [Suspect]
     Active Substance: CLOTRIMAZOLE
     Indication: CANDIDA NAPPY RASH
     Dosage: UNK
     Route: 061
     Dates: start: 20150422, end: 20150423
  3. SYTRON [Concomitant]
     Dosage: 1 ML, QD
     Route: 048
     Dates: start: 20150415
  4. DALIVIT [Concomitant]
     Indication: VITAMIN SUPPLEMENTATION
     Dosage: .6 ML, QD
     Route: 048
     Dates: start: 20150415
  5. FOLIC ACID. [Concomitant]
     Active Substance: FOLIC ACID
     Indication: VITAMIN SUPPLEMENTATION
     Dosage: .05 MG, QD
     Route: 048
     Dates: start: 20150417

REACTIONS (1)
  - Dermatitis contact [Recovered/Resolved]

NARRATIVE: CASE EVENT DATE: 20150422
